FAERS Safety Report 22255044 (Version 1)
Quarter: 2023Q2

REPORT INFORMATION
  Report Type: Report from Study
  Country: US (occurrence: US)
  Receive Date: 20230426
  Receipt Date: 20230426
  Transmission Date: 20230722
  Serious: Yes (Hospitalization)
  Sender: FDA-Public Use
  Company Number: US-GILEAD-2023-0625726

PATIENT
  Age: 71 Year
  Sex: Female

DRUGS (12)
  1. AMBRISENTAN [Suspect]
     Active Substance: AMBRISENTAN
     Indication: Product used for unknown indication
     Dosage: 10 MG
     Route: 065
  2. OFEV [Concomitant]
     Active Substance: NINTEDANIB
  3. ATENOLOL [Concomitant]
     Active Substance: ATENOLOL
  4. OMEPRAZOLE [Concomitant]
     Active Substance: OMEPRAZOLE
  5. TYVASO [Concomitant]
     Active Substance: TREPROSTINIL
  6. STELARA [Concomitant]
     Active Substance: USTEKINUMAB
  7. XIIDRA [Concomitant]
     Active Substance: LIFITEGRAST
  8. CALCIUM ASCORBATE [Concomitant]
     Active Substance: CALCIUM ASCORBATE
  9. HYDROCORTISONE [Concomitant]
     Active Substance: HYDROCORTISONE
  10. FOLIC ACID [Concomitant]
     Active Substance: FOLIC ACID
  11. PREDNISONE [Concomitant]
     Active Substance: PREDNISONE
  12. CALCIUM [Concomitant]
     Active Substance: CALCIUM

REACTIONS (1)
  - Dyspnoea [Recovering/Resolving]

NARRATIVE: CASE EVENT DATE: 20230412
